FAERS Safety Report 24888815 (Version 2)
Quarter: 2025Q2

REPORT INFORMATION
  Report Type: Spontaneous
  Country: US (occurrence: US)
  Receive Date: 20250127
  Receipt Date: 20250505
  Transmission Date: 20250716
  Serious: Yes (Death)
  Sender: MYLAN
  Company Number: US-MYLANLABS-2025M1006663

PATIENT
  Sex: Male

DRUGS (3)
  1. XANAX [Suspect]
     Active Substance: ALPRAZOLAM
     Indication: Product used for unknown indication
  2. FENTANYL [Suspect]
     Active Substance: FENTANYL
     Indication: Product used for unknown indication
  3. DIAZEPAM [Suspect]
     Active Substance: DIAZEPAM
     Indication: Product used for unknown indication

REACTIONS (2)
  - Overdose [Fatal]
  - Toxicity to various agents [Fatal]
